FAERS Safety Report 11279914 (Version 1)
Quarter: 2015Q3

REPORT INFORMATION
  Report Type: Spontaneous
  Country: US (occurrence: None)
  Receive Date: 20150716
  Receipt Date: 20150716
  Transmission Date: 20151125
  Serious: No
  Sender: FDA-Public Use
  Company Number: None

PATIENT
  Age: 48 Year
  Sex: Female
  Weight: 52.16 kg

DRUGS (6)
  1. HERBAL REMEDIES FOR BADDER, KIDNEY, HORMONE BALANCE [Concomitant]
  2. BACTO [Concomitant]
  3. NITROFURATION [Suspect]
     Active Substance: NITROFURANTOIN\NITROFURANTOIN MONOHYDRATE
     Indication: URINARY TRACT INFECTION
     Dosage: START DATE ON THIS SECOND SUSPECT MED IS JULY 8, 2015
     Route: 048
  4. CIPROFLOXACIN. [Suspect]
     Active Substance: CIPROFLOXACIN
     Indication: BACTERIAL INFECTION
     Route: 048
     Dates: start: 20150615, end: 20150616
  5. CIPROFLOXACIN. [Suspect]
     Active Substance: CIPROFLOXACIN
     Indication: URINARY TRACT INFECTION
     Route: 048
     Dates: start: 20150615, end: 20150616
  6. HERBAL -SINGLE CELL ANTIBACTERIAL [Concomitant]

REACTIONS (7)
  - Anxiety [None]
  - Muscle spasms [None]
  - Fatigue [None]
  - Feeling abnormal [None]
  - Insomnia [None]
  - Tachyphrenia [None]
  - Myalgia [None]

NARRATIVE: CASE EVENT DATE: 20150624
